FAERS Safety Report 4576589-9 (Version None)
Quarter: 2005Q1

REPORT INFORMATION
  Report Type: 
  Country: None (occurrence: None)
  Receive Date: 20050119
  Receipt Date: 20040909
  Transmission Date: 20050727
  Serious: Yes (Other)
  Sender: FDA-Public Use
  Company Number: A03200403154

PATIENT
  Age: 80 Year
  Sex: Female
  Weight: 67.1324 kg

DRUGS (2)
  1. PLAVIX [Suspect]
     Indication: TRANSIENT ISCHAEMIC ATTACK
     Dosage: 75 MG ONCE - ORAL
     Route: 048
     Dates: start: 20020101, end: 20020101
  2. ACETYLSALICYLIC ACID [Concomitant]

REACTIONS (3)
  - OROPHARYNGEAL SWELLING [None]
  - SWELLING FACE [None]
  - URTICARIA [None]
